FAERS Safety Report 7788829-3 (Version None)
Quarter: 2011Q3

REPORT INFORMATION
  Report Type: 
  Country: None (occurrence: None)
  Receive Date: 20110930
  Receipt Date: 20110927
  Transmission Date: 20111222
  Serious: Yes (Other)
  Sender: FDA-Public Use
  Company Number: JP-PFIZER INC-2011221825

PATIENT
  Age: 60 Year
  Sex: Female

DRUGS (1)
  1. LYRICA [Suspect]
     Indication: NEURALGIA
     Dosage: 300 MG DAILY
     Route: 048
     Dates: start: 20110628, end: 20110726

REACTIONS (2)
  - MYOCLONUS [None]
  - ELECTROENCEPHALOGRAM ABNORMAL [None]
